FAERS Safety Report 6737508-X (Version None)
Quarter: 2010Q2

REPORT INFORMATION
  Report Type: 
  Country: None (occurrence: None)
  Receive Date: 20100520
  Receipt Date: 20100507
  Transmission Date: 20101027
  Serious: Yes (Hospitalization, Other)
  Sender: FDA-Public Use
  Company Number: 7004207

PATIENT
  Age: 57 Year
  Sex: Female

DRUGS (2)
  1. REBIF [Suspect]
     Indication: MULTIPLE SCLEROSIS
     Dosage: 44 MCG, 3 IN 1 WK, SUBCUTANEOUS
     Route: 058
     Dates: start: 20040101
  2. ALEVE [Concomitant]

REACTIONS (12)
  - CATARACT [None]
  - DYSKINESIA [None]
  - FALL [None]
  - FATIGUE [None]
  - HEAD INJURY [None]
  - INFLUENZA LIKE ILLNESS [None]
  - INTERVERTEBRAL DISC PROTRUSION [None]
  - MUSCULOSKELETAL DISORDER [None]
  - PAIN [None]
  - RIB FRACTURE [None]
  - SPINAL COMPRESSION FRACTURE [None]
  - TOOTH INJURY [None]
